FAERS Safety Report 7973727-2 (Version None)
Quarter: 2011Q4

REPORT INFORMATION
  Report Type: 
  Country: None (occurrence: None)
  Receive Date: 20111213
  Receipt Date: 20111213
  Transmission Date: 20120403
  Serious: No
  Sender: FDA-Public Use
  Company Number: None

PATIENT
  Age: 44 Year
  Sex: Male
  Weight: 90.718 kg

DRUGS (1)
  1. VALPROIC ACID [Suspect]
     Dosage: 750MG
     Route: 048

REACTIONS (1)
  - PLATELET COUNT DECREASED [None]
